FAERS Safety Report 9394739 (Version 1)
Quarter: 2013Q3

REPORT INFORMATION
  Report Type: Spontaneous
  Country: SE (occurrence: SE)
  Receive Date: 20130711
  Receipt Date: 20130711
  Transmission Date: 20140515
  Serious: Yes (Hospitalization)
  Sender: FDA-Public Use
  Company Number: SE-ASTRAZENECA-2013SE50643

PATIENT
  Age: 80 Year
  Sex: Male

DRUGS (9)
  1. CANDESARTAN [Suspect]
     Route: 048
  2. BISOPROLOL [Concomitant]
  3. WARAN [Concomitant]
  4. HYDROKORTISON CCS [Concomitant]
  5. DAIVONEX [Concomitant]
     Dosage: 50UG/G, UNKNOWN DOSE
  6. FUROSEMID [Concomitant]
  7. ALLOPURINOL [Concomitant]
  8. ACETYLCYSTEIN [Concomitant]
  9. PROPYLESS [Concomitant]
     Dosage: 200MG/G

REACTIONS (2)
  - Flatulence [Unknown]
  - Diarrhoea [Unknown]
